FAERS Safety Report 7578257-8 (Version None)
Quarter: 2011Q2

REPORT INFORMATION
  Report Type: 
  Country: None (occurrence: None)
  Receive Date: 20110628
  Receipt Date: 20110624
  Transmission Date: 20111010
  Serious: Yes (Life-Threatening)
  Sender: FDA-Public Use
  Company Number: CA-JNJFOC-20110504223

PATIENT
  Age: 52 Year
  Sex: Female
  Weight: 57.15 kg

DRUGS (1)
  1. STELARA [Suspect]
     Indication: PRODUCT USED FOR UNKNOWN INDICATION
     Route: 058

REACTIONS (2)
  - CASTLEMAN'S DISEASE [None]
  - THYROID CANCER [None]
